FAERS Safety Report 8036790-9 (Version None)
Quarter: 2012Q1

REPORT INFORMATION
  Report Type: 
  Country: None (occurrence: None)
  Receive Date: 20120111
  Receipt Date: 20111227
  Transmission Date: 20120608
  Serious: Yes (Hospitalization)
  Sender: FDA-Public Use
  Company Number: ES-CELGENEUS-144-50794-11123574

PATIENT
  Age: 63 Year
  Sex: Male

DRUGS (2)
  1. PLATELETS [Concomitant]
     Route: 041
     Dates: start: 20110501, end: 20111001
  2. VIDAZA [Suspect]
     Route: 050
     Dates: start: 20110520, end: 20111103

REACTIONS (3)
  - LEUKOPENIA [None]
  - VOMITING [None]
  - TOXICITY TO VARIOUS AGENTS [None]
